FAERS Safety Report 14255183 (Version 5)
Quarter: 2018Q2

REPORT INFORMATION
  Report Type: Spontaneous
  Country: US (occurrence: US)
  Receive Date: 20171206
  Receipt Date: 20180413
  Transmission Date: 20180711
  Serious: Yes (Death, Hospitalization, Disabling, Other)
  Sender: FDA-Public Use
  Company Number: US-009507513-1711USA013854

PATIENT
  Age: 58 Year
  Sex: Female
  Weight: 54.42 kg

DRUGS (2)
  1. DIFICID [Suspect]
     Active Substance: FIDAXOMICIN
     Indication: CLOSTRIDIUM DIFFICILE COLITIS
     Dosage: UNK, BID
     Route: 048
     Dates: start: 201710, end: 20171130
  2. NEXIUM [Concomitant]
     Active Substance: ESOMEPRAZOLE MAGNESIUM
     Indication: GASTROINTESTINAL DISORDER
     Dosage: 40 MG, BID
     Route: 048
     Dates: start: 2000

REACTIONS (6)
  - Death [Fatal]
  - Jaundice [Not Recovered/Not Resolved]
  - Liver disorder [Unknown]
  - Hepatitis [Unknown]
  - Ascites [Not Recovered/Not Resolved]
  - Oedema peripheral [Not Recovered/Not Resolved]

NARRATIVE: CASE EVENT DATE: 201710
